FAERS Safety Report 6547504-3 (Version None)
Quarter: 2010Q1

REPORT INFORMATION
  Report Type: 
  Country: None (occurrence: None)
  Receive Date: 20100122
  Receipt Date: 20100111
  Transmission Date: 20100710
  Serious: Yes (Other)
  Sender: FDA-Public Use
  Company Number: NO-WATSON-2010-00470

PATIENT
  Sex: Female

DRUGS (2)
  1. TOPIRAMATE [Suspect]
     Indication: EPILEPSY
     Dosage: 200 MG, DAILY
     Route: 048
  2. OXCARBAZEPINE [Suspect]
     Indication: EPILEPSY
     Dosage: UNK

REACTIONS (3)
  - ABORTION SPONTANEOUS [None]
  - DRUG EXPOSURE DURING PREGNANCY [None]
  - SIMPLE PARTIAL SEIZURES [None]
